FAERS Safety Report 4640255-1 (Version None)
Quarter: 2005Q2

REPORT INFORMATION
  Report Type: 
  Country: None (occurrence: None)
  Receive Date: 20050420
  Receipt Date: 20050411
  Transmission Date: 20051028
  Serious: Yes (Hospitalization)
  Sender: FDA-Public Use
  Company Number: US-GLAXOSMITHKLINE-A0553808A

PATIENT
  Age: 51 Year
  Sex: Male

DRUGS (1)
  1. COREG [Suspect]
     Indication: CARDIAC FAILURE CONGESTIVE
     Route: 048

REACTIONS (10)
  - ABDOMINAL PAIN UPPER [None]
  - BIOPSY SITE UNSPECIFIED ABNORMAL [None]
  - BLOOD BILIRUBIN INCREASED [None]
  - BLOOD TEST ABNORMAL [None]
  - DYSPEPSIA [None]
  - DYSPHAGIA [None]
  - HEPATIC ENZYME INCREASED [None]
  - JAUNDICE [None]
  - JAUNDICE CHOLESTATIC [None]
  - NAUSEA [None]
